FAERS Safety Report 6909027-9 (Version None)
Quarter: 2010Q3

REPORT INFORMATION
  Report Type: 
  Country: None (occurrence: None)
  Receive Date: 20100708
  Receipt Date: 20100708
  Transmission Date: 20110219
  Serious: Yes (Hospitalization, Other)
  Sender: FDA-Public Use
  Company Number: 2007081615

PATIENT
  Age: 57 Year
  Sex: Female
  Weight: 71 kg

DRUGS (18)
  1. CHANTIX [Suspect]
     Indication: SMOKING CESSATION THERAPY
     Dosage: 1 MG, 2X/DAY 0.5 MG, 1X/DAY ORAL
     Route: 048
     Dates: start: 20070601, end: 20070801
  2. CHANTIX [Suspect]
     Indication: SMOKING CESSATION THERAPY
     Dosage: 1 MG, 2X/DAY 0.5 MG, 1X/DAY ORAL
     Route: 048
     Dates: start: 20091017
  3. CYTOXAN [Concomitant]
  4. POTASSIUM (POTASSIUM) [Concomitant]
  5. CYMBALTA [Concomitant]
  6. SIMVASTATIN [Concomitant]
  7. PREDNISONE [Concomitant]
  8. RANITIDINE [Concomitant]
  9. AMILORIDE (AMILORIDE) [Concomitant]
  10. FUROSEMIDE [Concomitant]
  11. PROTONIX [Concomitant]
  12. METHADONE HCL [Concomitant]
  13. OXYCODONE HCL [Concomitant]
  14. KLONOPIN [Concomitant]
  15. HUMIRA [Concomitant]
  16. FLU ^WYETH^ (INFULENZA VACCINE) [Concomitant]
  17. ORENCIA [Concomitant]
  18. METHOTREXATE SODIUM [Concomitant]

REACTIONS (8)
  - ANAEMIA [None]
  - CHEST PAIN [None]
  - DEHYDRATION [None]
  - ERYTHEMA [None]
  - HEADACHE [None]
  - PRURITUS [None]
  - RASH [None]
  - WHITE BLOOD CELL COUNT INCREASED [None]
